FAERS Safety Report 8203841-8 (Version None)
Quarter: 2012Q1

REPORT INFORMATION
  Report Type: 
  Country: None (occurrence: None)
  Receive Date: 20120313
  Receipt Date: 20120302
  Transmission Date: 20120608
  Serious: Yes (Hospitalization, Disabling)
  Sender: FDA-Public Use
  Company Number: FR-SANOFI-AVENTIS-2012SA001077

PATIENT
  Age: 61 Year
  Sex: Male

DRUGS (4)
  1. ALL OTHER THERAPEUTIC PRODUCTS [Suspect]
     Route: 058
     Dates: start: 20111220, end: 20111230
  2. PREVISCAN [Suspect]
     Indication: PULMONARY EMBOLISM
     Route: 048
     Dates: start: 20111127, end: 20111210
  3. LOVENOX [Suspect]
     Indication: PULMONARY EMBOLISM
     Route: 058
     Dates: start: 20111205, end: 20111208
  4. ALL OTHER THERAPEUTIC PRODUCTS [Suspect]
     Route: 058
     Dates: start: 20111209, end: 20111211

REACTIONS (3)
  - TUMOUR NECROSIS [None]
  - HEADACHE [None]
  - TUMOUR HAEMORRHAGE [None]
